FAERS Safety Report 8906190 (Version 1)
Quarter: 2012Q4

REPORT INFORMATION
  Report Type: Spontaneous
  Country: US (occurrence: None)
  Receive Date: 20121112
  Receipt Date: 20121112
  Transmission Date: 20130627
  Serious: Yes (Death, Life-Threatening, Hospitalization, Disabling)
  Sender: FDA-Public Use
  Company Number: None

PATIENT
  Age: 20 Year
  Sex: Male
  Weight: 65.77 kg

DRUGS (1)
  1. PROPECIA [Suspect]
     Indication: HAIR LOSS
     Dates: start: 200702, end: 200807

REACTIONS (24)
  - Mental impairment [None]
  - Loss of libido [None]
  - Erectile dysfunction [None]
  - Semen volume decreased [None]
  - Anorgasmia [None]
  - Penile size reduced [None]
  - Peyronie^s disease [None]
  - Genital hypoaesthesia [None]
  - Gynaecomastia [None]
  - Skin atrophy [None]
  - Dry skin [None]
  - Muscular weakness [None]
  - Muscle atrophy [None]
  - Cognitive disorder [None]
  - Thought blocking [None]
  - Memory impairment [None]
  - Flat affect [None]
  - Insomnia [None]
  - Anxiety [None]
  - Depression [None]
  - Completed suicide [None]
  - Emotional poverty [None]
  - General physical health deterioration [None]
  - Drug ineffective [None]
